FAERS Safety Report 12313146 (Version 1)
Quarter: 2016Q2

REPORT INFORMATION
  Report Type: Spontaneous
  Country: GB (occurrence: None)
  Receive Date: 20160427
  Receipt Date: 20160427
  Transmission Date: 20160815
  Serious: Yes (Hospitalization, Disabling)
  Sender: FDA-Public Use
  Company Number: None

PATIENT
  Age: 47 Year
  Sex: Female
  Weight: 55 kg

DRUGS (1)
  1. KENALOG [Suspect]
     Active Substance: TRIAMCINOLONE ACETONIDE
     Indication: BACK DISORDER
     Dosage: INJECTAD INTO SPINAL AREA
     Dates: start: 20110127, end: 20110127

REACTIONS (23)
  - Anxiety [None]
  - Vomiting [None]
  - Dizziness [None]
  - Tendon disorder [None]
  - Insomnia [None]
  - Blood cortisol increased [None]
  - Gastrointestinal pain [None]
  - Gastric disorder [None]
  - Palpitations [None]
  - Throat irritation [None]
  - Fall [None]
  - Swelling face [None]
  - Eye pain [None]
  - Stress [None]
  - Pain [None]
  - Myalgia [None]
  - Peripheral swelling [None]
  - Restlessness [None]
  - Dyspepsia [None]
  - Tinnitus [None]
  - Faeces discoloured [None]
  - Asthenia [None]
  - Fluid retention [None]

NARRATIVE: CASE EVENT DATE: 20160127
